FAERS Safety Report 12329930 (Version 1)
Quarter: 2016Q2

REPORT INFORMATION
  Report Type: Spontaneous
  Country: IT (occurrence: IT)
  Receive Date: 20160504
  Receipt Date: 20160504
  Transmission Date: 20160815
  Serious: Yes (Death)
  Sender: FDA-Public Use
  Company Number: IT-ASTRAZENECA-2016SE47449

PATIENT
  Age: 61 Year
  Sex: Female

DRUGS (6)
  1. GANCICLOVIR. [Concomitant]
     Active Substance: GANCICLOVIR
     Dosage: 150 MG EVERY 24 H
     Route: 042
  2. MEROPENEM. [Suspect]
     Active Substance: MEROPENEM
     Indication: ESCHERICHIA BACTERAEMIA
     Dosage: 1 GRAM EVERY 12 H
     Route: 042
  3. MEROPENEM. [Suspect]
     Active Substance: MEROPENEM
     Indication: ESCHERICHIA BACTERAEMIA
     Dosage: POWDER FOR SOLUTION FOR INFUSION DAILY, 2 GRAMS PER KILOGRAM OF WEIGHT BODY EVERY 12 H
     Route: 042
  4. LEVOFLOXACIN. [Concomitant]
     Active Substance: LEVOFLOXACIN
     Dosage: 750 MG EVERY 48 H WAS STARTED
  5. ERTAPENEM [Suspect]
     Active Substance: ERTAPENEM
     Indication: ESCHERICHIA BACTERAEMIA
     Route: 065
  6. , TRIMETHOPRIM/ SULFAMETHOXAZOLE [Concomitant]
     Dosage: 320/1600 MG DIVIDED EVERY 8 H

REACTIONS (1)
  - Multiple-drug resistance [Fatal]
